FAERS Safety Report 8816493 (Version 2)
Quarter: 2012Q4

REPORT INFORMATION
  Report Type: Spontaneous
  Country: JP (occurrence: None)
  Receive Date: 20120927
  Receipt Date: 20121016
  Transmission Date: 20130627
  Serious: Yes (Hospitalization)
  Sender: FDA-Public Use
  Company Number: DSJ-2012-17006

PATIENT
  Age: 80 Year
  Sex: Male
  Weight: 51.6 kg

DRUGS (8)
  1. OLMETEC [Suspect]
     Indication: HYPERTENSION
     Dosage: 10 mg (10 mg, 1 in 1 D), Per oral
     Route: 048
     Dates: start: 20101217, end: 20120817
  2. ANPLAG (SARPOGRELATE HYDROCHLORIDE) (TABLET) (SARPOGRELATE HYDROCHLORIDE) [Concomitant]
  3. MAINTATE (BISOPROLOL FUMARATE) (TABLET) (BISOPROLOL FUMARATE) [Concomitant]
  4. BUFFERIN (ACETYLSALICYLIC ACID) (TABLET) (ACETYLSALICYLIC ACID) [Concomitant]
  5. CRESTOR (ROSUVASTATIN) (TABLET) (ROSUVASTATIN) [Concomitant]
  6. ZETIA (EZETIMIBE) (TABLET) (EZETIMIBE) [Concomitant]
  7. TS 1 (OTERACIL POTASSIUM, TEGAFUR, GIMERACIL) (CAPSULE) (OTERACIL POTASSIUM, TEGAFUR, GIMERACIL) [Concomitant]
  8. ... [Concomitant]

REACTIONS (2)
  - Anaemia [None]
  - Generalised oedema [None]
